FAERS Safety Report 17801443 (Version 1)
Quarter: 2020Q2

REPORT INFORMATION
  Report Type: Report from Study
  Country: CN (occurrence: CN)
  Receive Date: 20200519
  Receipt Date: 20200519
  Transmission Date: 20200714
  Serious: Yes (Other)
  Sender: FDA-Public Use
  Company Number: CN-ROCHE-2601454

PATIENT

DRUGS (3)
  1. RECOMBINANT HUMAN INTERLEUKIN-2 [Suspect]
     Active Substance: ALDESLEUKIN
     Indication: COLON CANCER
     Dosage: 5 TIMES PER CYCLE
     Route: 041
  2. OXALIPLATIN. [Suspect]
     Active Substance: OXALIPLATIN
     Indication: COLON CANCER
     Dosage: DAY1
     Route: 041
  3. CAPECITABINE. [Suspect]
     Active Substance: CAPECITABINE
     Indication: COLON CANCER
     Dosage: IN THE MORNING AND IN THE EVENING,FROM DAY1 TO DAY14
     Route: 048

REACTIONS (3)
  - Renal injury [Unknown]
  - Bone marrow failure [Unknown]
  - Liver injury [Unknown]
